FAERS Safety Report 16532889 (Version 2)
Quarter: 2019Q3

REPORT INFORMATION
  Report Type: Spontaneous
  Country: JP (occurrence: JP)
  Receive Date: 20190705
  Receipt Date: 20190723
  Transmission Date: 20191004
  Serious: Yes (Other)
  Sender: FDA-Public Use
  Company Number: JP-009507513-1907JPN000205J

PATIENT
  Age: 82 Year
  Sex: Male
  Weight: 41 kg

DRUGS (1)
  1. CUBICIN [Suspect]
     Active Substance: DAPTOMYCIN
     Dosage: 350 MILLIGRAM/DAY
     Route: 041

REACTIONS (3)
  - Overdose [Unknown]
  - Intestinal obstruction [Unknown]
  - Drug resistance [Unknown]
